FAERS Safety Report 15578940 (Version 1)
Quarter: 2018Q4

REPORT INFORMATION
  Report Type: Spontaneous
  Country: US (occurrence: US)
  Receive Date: 20181102
  Receipt Date: 20181102
  Transmission Date: 20190205
  Serious: Yes (Hospitalization, Other)
  Sender: FDA-Public Use
  Company Number: US-NOVOPROD-628967

PATIENT
  Age: 37 Year
  Sex: Male

DRUGS (11)
  1. NOVOSEVEN RT [Suspect]
     Active Substance: COAGULATION FACTOR VIIA RECOMBINANT HUMAN
     Dosage: EVERY 2 HOURS
     Route: 042
     Dates: start: 20170918, end: 20170923
  2. FEIBA [Suspect]
     Active Substance: ANTI-INHIBITOR COAGULANT COMPLEX
     Dosage: UNK UNK, BID
     Route: 042
     Dates: start: 20170925, end: 20171006
  3. FEIBA [Suspect]
     Active Substance: ANTI-INHIBITOR COAGULANT COMPLEX
     Dosage: UNK
     Route: 042
     Dates: start: 20171007, end: 20171007
  4. NOVOSEVEN RT [Suspect]
     Active Substance: COAGULATION FACTOR VIIA RECOMBINANT HUMAN
     Dosage: EVERY 6 HOURS
     Route: 042
     Dates: start: 20171007, end: 20171019
  5. NOVOSEVEN RT [Suspect]
     Active Substance: COAGULATION FACTOR VIIA RECOMBINANT HUMAN
     Dosage: EVERY 4 HOURS
     Route: 042
     Dates: start: 20170924, end: 20170924
  6. NOVOSEVEN RT [Suspect]
     Active Substance: COAGULATION FACTOR VIIA RECOMBINANT HUMAN
     Dosage: EVERY 4 HOURS
     Route: 042
     Dates: start: 20170906, end: 20170911
  7. FEIBA [Suspect]
     Active Substance: ANTI-INHIBITOR COAGULANT COMPLEX
     Indication: HAEMOPHILIA B WITH ANTI FACTOR IX
     Dosage: EVERY 12 HOURS
     Route: 042
     Dates: start: 20170912, end: 20170917
  8. NOVOSEVEN RT [Suspect]
     Active Substance: COAGULATION FACTOR VIIA RECOMBINANT HUMAN
     Dosage: EVERY 3 HOURS
     Route: 042
     Dates: start: 20170901, end: 20170905
  9. NOVOSEVEN RT [Suspect]
     Active Substance: COAGULATION FACTOR VIIA RECOMBINANT HUMAN
     Dosage: UNK
     Route: 042
     Dates: start: 20171006, end: 20171006
  10. NOVOSEVEN RT [Suspect]
     Active Substance: COAGULATION FACTOR VIIA RECOMBINANT HUMAN
     Dosage: UNK UNK, QD
     Route: 042
     Dates: start: 20171019, end: 20171024
  11. NOVOSEVEN RT [Suspect]
     Active Substance: COAGULATION FACTOR VIIA RECOMBINANT HUMAN
     Indication: HAEMOPHILIA B WITH ANTI FACTOR IX
     Dosage: EVERY 2 HOURS
     Route: 042
     Dates: start: 20170814, end: 20170831

REACTIONS (9)
  - Staphylococcal bacteraemia [Recovered/Resolved]
  - Colitis ischaemic [Recovered/Resolved]
  - Disseminated intravascular coagulation [Recovered/Resolved]
  - Bladder neoplasm [Recovered/Resolved]
  - Disseminated intravascular coagulation [Recovered/Resolved]
  - Renal infarct [Recovered/Resolved]
  - Coronary artery thrombosis [Recovered/Resolved]
  - Arthritis infective [Recovered/Resolved]
  - Tooth extraction [Recovered/Resolved]

NARRATIVE: CASE EVENT DATE: 20170918
